FAERS Safety Report 5755166-8 (Version None)
Quarter: 2008Q2

REPORT INFORMATION
  Report Type: 
  Country: None (occurrence: None)
  Receive Date: 20080528
  Receipt Date: 20080516
  Transmission Date: 20081010
  Serious: Yes (Other)
  Sender: FDA-Public Use
  Company Number: 163-21880-08051109

PATIENT
  Age: 43 Year
  Sex: Female

DRUGS (1)
  1. REVLIMID [Suspect]
     Indication: MULTIPLE MYELOMA
     Dosage: 15 MG, DAILY X21 DAYS, ORAL
     Route: 048
     Dates: start: 20080414, end: 20080516

REACTIONS (3)
  - BLOOD HUMAN CHORIONIC GONADOTROPIN POSITIVE [None]
  - NEUTROPENIA [None]
  - PREGNANCY TEST FALSE POSITIVE [None]
